FAERS Safety Report 19021638 (Version 1)
Quarter: 2021Q1

REPORT INFORMATION
  Report Type: Spontaneous
  Country: US (occurrence: US)
  Receive Date: 20210318
  Receipt Date: 20210318
  Transmission Date: 20210420
  Serious: Yes (Hospitalization)
  Sender: FDA-Public Use
  Company Number: GB-PROCTER+GAMBLE-PH21000427

PATIENT
  Age: 77 Year
  Sex: Male

DRUGS (1)
  1. DIPHENHYDRAMINE HCL [Suspect]
     Active Substance: DIPHENHYDRAMINE HYDROCHLORIDE
     Dosage: UNK, TAKING BETWEEN 250 MG AND 750 MG NIGHTLY FOR 30 YEARS
     Route: 048

REACTIONS (7)
  - Executive dysfunction [Unknown]
  - Urinary retention [Recovered/Resolved]
  - Cognitive disorder [Unknown]
  - Amnesia [Unknown]
  - Dementia [Unknown]
  - Pain in extremity [Unknown]
  - Deep vein thrombosis [Unknown]
